FAERS Safety Report 9729185 (Version 1)
Quarter: 2013Q4

REPORT INFORMATION
  Report Type: Spontaneous
  Country: US (occurrence: US)
  Receive Date: 20131204
  Receipt Date: 20131204
  Transmission Date: 20140711
  Serious: Yes (Hospitalization)
  Sender: FDA-Public Use
  Company Number: US-BAYER-2013-147277

PATIENT
  Age: 33 Year
  Sex: Female

DRUGS (5)
  1. YASMIN [Suspect]
  2. YAZ [Suspect]
  3. HYDROCHLOROTHIAZIDE [Concomitant]
     Dosage: 12.5 MG, UNK
  4. LISINOPRIL [Concomitant]
     Dosage: 5 MG, UNK
  5. VICODIN [Concomitant]
     Dosage: 5-500 MG
     Dates: start: 20071005

REACTIONS (1)
  - Deep vein thrombosis [Recovered/Resolved]
